FAERS Safety Report 25854847 (Version 2)
Quarter: 2025Q4

REPORT INFORMATION
  Report Type: Spontaneous
  Country: US (occurrence: US)
  Receive Date: 20250927
  Receipt Date: 20251114
  Transmission Date: 20260117
  Serious: No
  Sender: SANOFI AVENTIS
  Company Number: US-SA-2025SA285794

PATIENT
  Sex: Female
  Weight: 57.27 kg

DRUGS (4)
  1. DUPIXENT [Suspect]
     Active Substance: DUPILUMAB
     Indication: Dermatitis atopic
     Dosage: 300 MG, QOW
     Route: 058
  2. CERAVE HEALING [Concomitant]
     Active Substance: PETROLATUM
     Dosage: UNK
  3. Hair skin nails [Concomitant]
     Dosage: UNK
  4. Ensure active high protein [Concomitant]
     Dosage: UNK

REACTIONS (4)
  - Dry skin [Not Recovered/Not Resolved]
  - Skin fissures [Not Recovered/Not Resolved]
  - Pruritus [Not Recovered/Not Resolved]
  - Hand-foot-and-mouth disease [Unknown]
